FAERS Safety Report 15417051 (Version 1)
Quarter: 2018Q3

REPORT INFORMATION
  Report Type: Spontaneous
  Country: US (occurrence: US)
  Receive Date: 20180924
  Receipt Date: 20180924
  Transmission Date: 20181010
  Serious: Yes (Hospitalization, Other)
  Sender: FDA-Public Use
  Company Number: US-ZYDUS-027025

PATIENT
  Age: 87 Year
  Sex: Male

DRUGS (2)
  1. AMIODARONE [Suspect]
     Active Substance: AMIODARONE
     Indication: VENTRICULAR FIBRILLATION
  2. RIVAROXABAN [Interacting]
     Active Substance: RIVAROXABAN
     Indication: PRODUCT USED FOR UNKNOWN INDICATION

REACTIONS (10)
  - Lactic acidosis [Recovering/Resolving]
  - Coagulation test abnormal [Recovering/Resolving]
  - Acute kidney injury [Recovering/Resolving]
  - Leukocytosis [Recovering/Resolving]
  - Drug interaction [Recovering/Resolving]
  - Pericardial effusion [Recovered/Resolved]
  - Pericardial haemorrhage [Recovered/Resolved]
  - Hepatic function abnormal [Recovering/Resolving]
  - Drug level increased [Unknown]
  - Cardiac tamponade [Recovered/Resolved]
